FAERS Safety Report 8580900-1 (Version None)
Quarter: 2012Q3

REPORT INFORMATION
  Report Type: 
  Country: None (occurrence: None)
  Receive Date: 20120726
  Receipt Date: 20120711
  Transmission Date: 20120928
  Serious: Yes (Other)
  Sender: FDA-Public Use
  Company Number: FK201201941

PATIENT
  Age: 24 Year
  Sex: Male

DRUGS (4)
  1. HALOPERIDOL [Suspect]
     Indication: PSYCHOTIC DISORDER
     Dosage: 5 MG, THREE TIMES A DAY, ORAL
     Route: 048
  2. VALPROIC ACID [Concomitant]
  3. ARIPIPRAZOLE [Concomitant]
  4. LEVOMEPROMAZINE (LEVOMEPROMAZINE) [Suspect]
     Indication: PSYCHOTIC DISORDER
     Dosage: 25 MG, THREE TIMES A DAY, ORAL
     Route: 048

REACTIONS (9)
  - MYDRIASIS [None]
  - HYPOAESTHESIA [None]
  - INSOMNIA [None]
  - BREAST ENLARGEMENT [None]
  - BLOOD PROLACTIN INCREASED [None]
  - PUPILLARY REFLEX IMPAIRED [None]
  - AREFLEXIA [None]
  - AGGRESSION [None]
  - PITUITARY TUMOUR BENIGN [None]
